FAERS Safety Report 13389657 (Version 1)
Quarter: 2017Q1

REPORT INFORMATION
  Report Type: Spontaneous
  Country: AT (occurrence: AT)
  Receive Date: 20170331
  Receipt Date: 20170331
  Transmission Date: 20170429
  Serious: Yes (Hospitalization)
  Sender: FDA-Public Use
  Company Number: AT-ACCORD-049668

PATIENT
  Age: 76 Year
  Sex: Female
  Weight: 73.2 kg

DRUGS (11)
  1. PANTOPRAZOLE [Concomitant]
     Active Substance: PANTOPRAZOLE SODIUM
     Dosage: PANTOPRAZOLE SODIUM SESQUIHYDRATE 20-40 MG
     Route: 048
  2. SERTRALINE [Suspect]
     Active Substance: SERTRALINE HYDROCHLORIDE
     Indication: PRODUCT USED FOR UNKNOWN INDICATION
     Dosage: PREVIOUSLY TOOK 50 MG FROM UNKNOWN DATE OF DEC-2014 TO 30-DEC-2014 AND THEN DOSE INCREASED
     Route: 048
     Dates: start: 20141231, end: 20150213
  3. DOMINAL (PROTHIPENDYL HYDROCHLORIDE) [Suspect]
     Active Substance: PROTHIPENDYL HYDROCHLORIDE
     Indication: PRODUCT USED FOR UNKNOWN INDICATION
     Route: 048
     Dates: start: 201412, end: 20150201
  4. XARELTO [Concomitant]
     Active Substance: RIVAROXABAN
     Route: 048
  5. ZOLDEM [Concomitant]
     Active Substance: ZOLPIDEM TARTRATE
     Dates: start: 20150122, end: 20150201
  6. LANITOP [Concomitant]
     Active Substance: METILDIGOXIN
     Route: 048
  7. SIMVASTATIN. [Concomitant]
     Active Substance: SIMVASTATIN
     Route: 048
  8. CONCOR COR [Concomitant]
     Active Substance: BISOPROLOL FUMARATE
     Route: 048
  9. RAMIPRIL. [Concomitant]
     Active Substance: RAMIPRIL
     Dosage: SINCE A LONG TIME
     Route: 048
  10. OLEOVIT [Concomitant]
     Route: 048
  11. SEROQUEL [Suspect]
     Active Substance: QUETIAPINE FUMARATE
     Indication: PRODUCT USED FOR UNKNOWN INDICATION
     Dosage: 15-JAN-2015 TO 19-JAN-2015 RECEIVED 25-250 MG; ?20-JAN-2015 TO 26-JAN-2015 RECEIVED 300 MG
     Route: 048
     Dates: start: 20150127, end: 20150201

REACTIONS (1)
  - Delirium [Recovered/Resolved]

NARRATIVE: CASE EVENT DATE: 20150128
